FAERS Safety Report 19488803 (Version 2)
Quarter: 2021Q3

REPORT INFORMATION
  Report Type: Report from Study
  Country: PL (occurrence: PL)
  Receive Date: 20210702
  Receipt Date: 20210720
  Transmission Date: 20211014
  Serious: Yes (Hospitalization)
  Sender: FDA-Public Use
  Company Number: PL-PFIZER INC-2021817284

PATIENT
  Age: 68 Year
  Sex: Male

DRUGS (13)
  1. IPILIMUMAB [Suspect]
     Active Substance: IPILIMUMAB
     Dosage: 3 MG/KG (291MG) FIRST COURSE
     Dates: start: 20190301
  2. BINIMETINIB [Suspect]
     Active Substance: BINIMETINIB
     Dosage: 45 MG, 2X
     Dates: start: 20181220, end: 20190214
  3. IPILIMUMAB [Suspect]
     Active Substance: IPILIMUMAB
     Dosage: 3 MG/KG (291MG) 4TH COURSE
     Dates: start: 20210502
  4. ENCORAFENIB [Suspect]
     Active Substance: ENCORAFENIB
     Dosage: 450 MG, X1
     Dates: start: 20210430, end: 20210608
  5. BMS?936558 [Suspect]
     Active Substance: NIVOLUMAB
     Dosage: 1 MG/KG (97MG) 1ST COURSE
     Dates: start: 20190301
  6. ENCORAFENIB [Suspect]
     Active Substance: ENCORAFENIB
     Dosage: 450MG, X1
     Dates: start: 20181220, end: 20190214
  7. BMS?936558 [Suspect]
     Active Substance: NIVOLUMAB
     Dosage: 1 MG/KG (97MG) 2ND COURSE
     Dates: start: 20190322
  8. BINIMETINIB [Suspect]
     Active Substance: BINIMETINIB
     Dosage: 45 MG, 2X
     Dates: start: 20210430, end: 20210608
  9. BMS?936558 [Suspect]
     Active Substance: NIVOLUMAB
     Dosage: 3 MG/KG, CYCLIC (Q14)
     Dates: start: 20190524, end: 20210402
  10. IPILIMUMAB [Suspect]
     Active Substance: IPILIMUMAB
     Dosage: 3 MG/KG (291MG) SECOND COURSE
     Dates: start: 20190322
  11. IPILIMUMAB [Suspect]
     Active Substance: IPILIMUMAB
     Dosage: 3 MG/KG (291MG) THIRD COURSE
     Dates: start: 20190411
  12. BMS?936558 [Suspect]
     Active Substance: NIVOLUMAB
     Dosage: 1 MG/KG (97MG) 3RD COURSE
     Dates: start: 20190411
  13. BMS?936558 [Suspect]
     Active Substance: NIVOLUMAB
     Dosage: 1 MG/KG (97MG) 4TH COURSE
     Dates: start: 20190502

REACTIONS (2)
  - Guillain-Barre syndrome [Not Recovered/Not Resolved]
  - Polyneuropathy [Not Recovered/Not Resolved]

NARRATIVE: CASE EVENT DATE: 20210607
